FAERS Safety Report 7716455-0 (Version None)
Quarter: 2011Q3

REPORT INFORMATION
  Report Type: 
  Country: None (occurrence: None)
  Receive Date: 20110829
  Receipt Date: 20110824
  Transmission Date: 20111222
  Serious: Yes (Death)
  Sender: FDA-Public Use
  Company Number: PHHY2011DE40426

PATIENT
  Sex: Female

DRUGS (6)
  1. ENOXAPARIN SODIUM [Concomitant]
     Dosage: 800 IU, UNK
     Dates: start: 20050101
  2. ZOMETA [Suspect]
     Dosage: 4 MG, UNK
     Route: 042
     Dates: start: 20110401
  3. FENTANYL [Concomitant]
  4. METAMIZOL [Concomitant]
  5. FEMARA [Concomitant]
     Dosage: 2.5 MG, UNK
     Dates: start: 20110118
  6. ZOMETA [Suspect]
     Indication: BONE DISORDER
     Dosage: 4 MG, UNK
     Route: 042
     Dates: start: 20110119

REACTIONS (5)
  - NEOPLASM PROGRESSION [None]
  - CARDIAC FAILURE [None]
  - DYSPNOEA [None]
  - NEOPLASM MALIGNANT [None]
  - GENERAL PHYSICAL HEALTH DETERIORATION [None]
